FAERS Safety Report 5156052-7 (Version None)
Quarter: 2006Q4

REPORT INFORMATION
  Report Type: 
  Country: None (occurrence: None)
  Receive Date: 20061114
  Receipt Date: 20061106
  Transmission Date: 20070319
  Serious: Yes (Other)
  Sender: FDA-Public Use
  Company Number: 2006SP005916

PATIENT
  Age: 6 Year
  Sex: Male

DRUGS (5)
  1. CLARITIN [Suspect]
     Indication: NASAL CONGESTION
     Dosage: 1 DF; QD; PO
     Route: 048
     Dates: start: 20061101, end: 20061106
  2. CLARITIN [Suspect]
     Indication: PHARYNGOLARYNGEAL PAIN
     Dosage: 1 DF; QD; PO
     Route: 048
     Dates: start: 20061101, end: 20061106
  3. CLARITIN [Suspect]
     Indication: RHINORRHOEA
     Dosage: 1 DF; QD; PO
     Route: 048
     Dates: start: 20061101, end: 20061106
  4. ROBITUSSIN DM [Concomitant]
  5. TYLENOL [Concomitant]

REACTIONS (3)
  - GLOSSODYNIA [None]
  - HAEMOPTYSIS [None]
  - TONGUE DISORDER [None]
